FAERS Safety Report 6436379-9 (Version None)
Quarter: 2009Q4

REPORT INFORMATION
  Report Type: 
  Country: None (occurrence: None)
  Receive Date: 20091111
  Receipt Date: 20091029
  Transmission Date: 20100525
  Serious: Yes (Other)
  Sender: FDA-Public Use
  Company Number: PHHY2009BR21771

PATIENT
  Age: 55 Year
  Sex: Female

DRUGS (3)
  1. ACLASTA [Suspect]
     Indication: OSTEOPOROSIS
     Dosage: 5 MG/100 ML
     Route: 042
     Dates: start: 20090524
  2. GLUCOSAMINE SULFATE W/CHONDROITIN [Concomitant]
     Dosage: 1.5/1.2G
     Dates: start: 20090119
  3. MELOXICAM [Concomitant]
     Dosage: 15 MG, UNK
     Dates: start: 20090119

REACTIONS (6)
  - BURNING SENSATION [None]
  - ERYTHEMA [None]
  - OEDEMA [None]
  - PAIN [None]
  - PANNICULITIS [None]
  - PYREXIA [None]
